FAERS Safety Report 6045755-8 (Version None)
Quarter: 2009Q1

REPORT INFORMATION
  Report Type: 
  Country: None (occurrence: None)
  Receive Date: 20090121
  Receipt Date: 20090109
  Transmission Date: 20090719
  Serious: Yes (Hospitalization, Other)
  Sender: FDA-Public Use
  Company Number: GB-WYE-H07705909

PATIENT
  Sex: Male

DRUGS (6)
  1. CORDARONE [Suspect]
     Indication: ARRHYTHMIA
  2. CORDARONE [Suspect]
     Indication: HEART RATE IRREGULAR
  3. BUMETANIDE [Concomitant]
  4. AMILORIDE HYDROCHLORIDE [Concomitant]
  5. TELMISARTAN [Concomitant]
  6. BISOPROLOL [Concomitant]

REACTIONS (5)
  - DEAFNESS [None]
  - DRUG INEFFECTIVE [None]
  - LIVER DISORDER [None]
  - RENAL DISORDER [None]
  - TINNITUS [None]
